FAERS Safety Report 7484148-3 (Version None)
Quarter: 2011Q2

REPORT INFORMATION
  Report Type: 
  Country: None (occurrence: None)
  Receive Date: 20110517
  Receipt Date: 20110504
  Transmission Date: 20111010
  Serious: Yes (Other)
  Sender: FDA-Public Use
  Company Number: US-ELI_LILLY_AND_COMPANY-US201105002175

PATIENT
  Age: 54 Year
  Sex: Male

DRUGS (14)
  1. ANTARA (MICRONIZED) [Concomitant]
     Indication: BLOOD CHOLESTEROL INCREASED
  2. POTASSIUM [Concomitant]
  3. SINGULAIR [Concomitant]
  4. ASPIRIN [Concomitant]
     Dosage: 81 MG, UNK
  5. BACLOFEN [Concomitant]
  6. LEVOTHYROXINE SODIUM [Concomitant]
  7. PREVACID [Concomitant]
  8. CRESTOR [Concomitant]
     Indication: BLOOD CHOLESTEROL INCREASED
  9. LITHIUM [Concomitant]
     Dosage: UNK
     Dates: end: 20100101
  10. ZYPREXA [Suspect]
     Indication: MENTAL DISORDER
     Dosage: 10 MG, BID
  11. VICODIN [Concomitant]
     Indication: PAIN
     Dosage: UNK, PRN
  12. BYETTA [Concomitant]
  13. TRAMADOL HYDROCHLORIDE [Concomitant]
  14. ARTANE [Concomitant]
     Indication: PAIN

REACTIONS (16)
  - HYPERGLYCAEMIA [None]
  - TREMOR [None]
  - BALANCE DISORDER [None]
  - RENAL FAILURE [None]
  - POLLAKIURIA [None]
  - VISION BLURRED [None]
  - PANCREATIC DISORDER [None]
  - DIABETES MELLITUS [None]
  - ADVERSE EVENT [None]
  - VOMITING [None]
  - GALLBLADDER DISORDER [None]
  - DRY MOUTH [None]
  - NAUSEA [None]
  - URINE COLOUR ABNORMAL [None]
  - LIVER DISORDER [None]
  - TINNITUS [None]
